FAERS Safety Report 15130570 (Version 1)
Quarter: 2018Q3

REPORT INFORMATION
  Report Type: Spontaneous
  Country: ZA (occurrence: ZA)
  Receive Date: 20180711
  Receipt Date: 20180711
  Transmission Date: 20181010
  Serious: Yes (Hospitalization)
  Sender: FDA-Public Use
  Company Number: ZA-PFIZER INC-2018275191

PATIENT
  Age: 59 Year
  Sex: Female

DRUGS (7)
  1. BAYER ASPIRIN CARDIO [Suspect]
     Active Substance: ASPIRIN
     Dosage: 100 MG, UNK
  2. ADALAT CC [Suspect]
     Active Substance: NIFEDIPINE
  3. LASIX + K [Suspect]
     Active Substance: FUROSEMIDE\POTASSIUM CHLORIDE
     Dosage: 80 MG, UNK
  4. ACCURETIC [Suspect]
     Active Substance: HYDROCHLOROTHIAZIDE\QUINAPRIL HYDROCHLORIDE
     Dosage: 20/12.5MG
  5. GLUCOPHAGE [Suspect]
     Active Substance: METFORMIN HYDROCHLORIDE
     Dosage: 1000 MG, UNK
  6. ADCO?SIMVASTATIN [Suspect]
     Active Substance: SIMVASTATIN
     Dosage: 40 MG, UNK
  7. NOVOMIX [Suspect]
     Active Substance: INSULIN ASPART
     Dosage: 30, UNK

REACTIONS (4)
  - Renal failure [Unknown]
  - Respiratory failure [Unknown]
  - Cardiac failure [Unknown]
  - Ankle fracture [Unknown]
